FAERS Safety Report 19074858 (Version 6)
Quarter: 2021Q4

REPORT INFORMATION
  Report Type: Report from Study
  Country: MX (occurrence: MX)
  Receive Date: 20210331
  Receipt Date: 20211129
  Transmission Date: 20220303
  Serious: Yes (Hospitalization, Other)
  Sender: FDA-Public Use
  Company Number: MX-JNJFOC-20210351139

PATIENT
  Age: 67 Year
  Sex: Female
  Weight: 68 kg

DRUGS (3)
  1. SIMPONI [Suspect]
     Active Substance: GOLIMUMAB
     Indication: Rheumatoid arthritis
     Route: 058
     Dates: start: 20181210, end: 20210928
  2. PFIZER-BIONTECH COVID-19 VACCINE [Suspect]
     Active Substance: TOZINAMERAN
     Indication: Immunisation
     Route: 065
     Dates: start: 20210705
  3. PFIZER-BIONTECH COVID-19 VACCINE [Suspect]
     Active Substance: TOZINAMERAN
     Route: 065
     Dates: start: 20210728

REACTIONS (11)
  - Diverticulitis [Recovering/Resolving]
  - Cellulitis [Not Recovered/Not Resolved]
  - Salmonellosis [Recovering/Resolving]
  - Haemoglobin decreased [Recovered/Resolved]
  - Haemorrhage [Unknown]
  - Syncope [Recovered/Resolved]
  - Blood glucose increased [Recovered/Resolved]
  - Rheumatoid arthritis [Unknown]
  - Malnutrition [Recovering/Resolving]
  - Mycobacterium tuberculosis complex test positive [Unknown]
  - Immune system disorder [Unknown]

NARRATIVE: CASE EVENT DATE: 20210101
